FAERS Safety Report 8817055 (Version 1)
Quarter: 2012Q4

REPORT INFORMATION
  Report Type: Spontaneous
  Country: US (occurrence: None)
  Receive Date: 20121003
  Receipt Date: 20121003
  Transmission Date: 20130627
  Serious: No
  Sender: FDA-Public Use
  Company Number: None

PATIENT
  Age: 53 Year
  Sex: Female
  Weight: 62.14 kg

DRUGS (1)
  1. SOLUCORTEF [Suspect]
     Indication: ADRENAL INSUFFICIENCY
     Dosage: 22 mgs daily 24/7 sq
     Dates: start: 20120603, end: 20121002

REACTIONS (2)
  - Pruritus [None]
  - Erythema [None]
